FAERS Safety Report 25893025 (Version 1)
Quarter: 2025Q4

REPORT INFORMATION
  Report Type: Spontaneous
  Country: US (occurrence: US)
  Receive Date: 20251008
  Receipt Date: 20251008
  Transmission Date: 20260118
  Serious: No
  Sender: ABBVIE
  Company Number: US-ABBVIE-6482302

PATIENT
  Age: 60 Year
  Sex: Female
  Weight: 77 kg

DRUGS (7)
  1. BOTOX COSMETIC [Suspect]
     Active Substance: ONABOTULINUMTOXINA
     Indication: Skin wrinkling
     Dosage: TIME INTERVAL: AS NECESSARY: DOSE: 20 UNITS, STRENGTH: 36 UNITS
     Route: 030
     Dates: start: 20250910, end: 20250910
  2. BOTOX COSMETIC [Suspect]
     Active Substance: ONABOTULINUMTOXINA
     Indication: Skin wrinkling
     Dosage: TIME INTERVAL: AS NECESSARY: STRENGTH: 55 IU?FREQUENCY: ONE EVERY 4 TO 6 MONTHS
     Route: 030
     Dates: start: 20150522, end: 20150522
  3. BOTOX COSMETIC [Suspect]
     Active Substance: ONABOTULINUMTOXINA
     Indication: Skin wrinkling
     Dosage: TIME INTERVAL: AS NECESSARY: STRENGTH: 55 IU?FREQUENCY: ONE EVERY 4 TO 6 MONTHS
     Route: 030
     Dates: start: 20150522, end: 20150522
  4. BOTOX COSMETIC [Suspect]
     Active Substance: ONABOTULINUMTOXINA
     Indication: Skin wrinkling
     Dosage: TIME INTERVAL: AS NECESSARY: STRENGTH: 55 IU?FREQUENCY: ONE EVERY 4 TO 6 MONTHS
     Route: 030
     Dates: start: 20150522, end: 20150522
  5. BOTOX COSMETIC [Suspect]
     Active Substance: ONABOTULINUMTOXINA
     Indication: Skin wrinkling
     Dosage: TIME INTERVAL: AS NECESSARY: DOSE: 4 UNITS, STRENGTH: 36 UNITS
     Route: 030
     Dates: start: 20250910, end: 20250910
  6. BOTOX COSMETIC [Suspect]
     Active Substance: ONABOTULINUMTOXINA
     Indication: Skin wrinkling
     Dosage: TIME INTERVAL: AS NECESSARY: DOSE: 4 UNITS, STRENGTH: 36 UNITS
     Route: 030
     Dates: start: 20250910, end: 20250910
  7. SPIRONOLACTONE [Concomitant]
     Active Substance: SPIRONOLACTONE
     Indication: Acne

REACTIONS (6)
  - Insomnia [Not Recovered/Not Resolved]
  - Vibration syndrome [Not Recovered/Not Resolved]
  - Feeling cold [Not Recovered/Not Resolved]
  - Foreign body in throat [Not Recovered/Not Resolved]
  - Oxygen saturation decreased [Not Recovered/Not Resolved]
  - Gastrooesophageal reflux disease [Unknown]

NARRATIVE: CASE EVENT DATE: 20250901
